FAERS Safety Report 9806030 (Version 1)
Quarter: 2014Q1

REPORT INFORMATION
  Report Type: Report from Study
  Country: US (occurrence: US)
  Receive Date: 20140109
  Receipt Date: 20140109
  Transmission Date: 20141002
  Serious: Yes (Other)
  Sender: FDA-Public Use
  Company Number: US-ABBVIE-14P-163-1185665-00

PATIENT
  Sex: Male
  Weight: 133.93 kg

DRUGS (4)
  1. HUMIRA [Suspect]
     Indication: PSORIATIC ARTHROPATHY
     Dates: start: 2010, end: 2010
  2. HUMIRA [Suspect]
     Indication: PSORIASIS
     Dates: start: 2011, end: 2012
  3. HUMIRA [Suspect]
     Dates: start: 20131214, end: 20131214
  4. HUMIRA [Suspect]
     Dates: start: 20131221

REACTIONS (7)
  - Cardiomegaly [Not Recovered/Not Resolved]
  - Bundle branch block left [Not Recovered/Not Resolved]
  - Ejection fraction abnormal [Not Recovered/Not Resolved]
  - Electrocardiogram abnormal [Unknown]
  - Arrhythmia [Not Recovered/Not Resolved]
  - Psoriasis [Not Recovered/Not Resolved]
  - Arthralgia [Not Recovered/Not Resolved]
